FAERS Safety Report 4557454-X (Version None)
Quarter: 2005Q1

REPORT INFORMATION
  Report Type: 
  Country: None (occurrence: None)
  Receive Date: 20050118
  Receipt Date: 20050104
  Transmission Date: 20050727
  Serious: Yes (Death)
  Sender: FDA-Public Use
  Company Number: 2005006169

PATIENT
  Age: 8 Week
  Sex: Male
  Weight: 5.4432 kg

DRUGS (1)
  1. BENADRYL [Suspect]
     Indication: SLEEP DISORDER
     Dosage: 0.8 ML EACH NIGHT, ORAL
     Route: 048

REACTIONS (2)
  - DRUG TOXICITY [None]
  - SUDDEN INFANT DEATH SYNDROME [None]
